FAERS Safety Report 18821350 (Version 1)
Quarter: 2021Q1

REPORT INFORMATION
  Report Type: Spontaneous
  Country: US (occurrence: US)
  Receive Date: 20210201
  Receipt Date: 20210201
  Transmission Date: 20210419
  Serious: No
  Sender: FDA-Public Use
  Company Number: None

PATIENT
  Age: 77 Year
  Sex: Male

DRUGS (2)
  1. OXYCODONE (OXYCODONE HCL 20MG TAB) [Suspect]
     Active Substance: OXYCODONE HYDROCHLORIDE
     Indication: PAIN
     Dates: start: 20200724, end: 20200724
  2. OXYCODONE (OXYCODONE HCL 30MG TAB) [Suspect]
     Active Substance: OXYCODONE HYDROCHLORIDE
     Indication: PAIN
     Dates: start: 20200724, end: 20200724

REACTIONS (1)
  - Product label confusion [None]

NARRATIVE: CASE EVENT DATE: 20200724
